FAERS Safety Report 7386576-3 (Version None)
Quarter: 2011Q1

REPORT INFORMATION
  Report Type: 
  Country: None (occurrence: None)
  Receive Date: 20110331
  Receipt Date: 20110322
  Transmission Date: 20110831
  Serious: Yes (Other)
  Sender: FDA-Public Use
  Company Number: US-ROCHE-744047

PATIENT
  Sex: Male
  Weight: 102.1 kg

DRUGS (2)
  1. PEGASYS [Suspect]
     Indication: ANTIVIRAL TREATMENT
     Route: 065
     Dates: start: 20080908, end: 20090222
  2. RIBAVIRIN [Suspect]
     Indication: ANTIVIRAL TREATMENT
     Route: 065

REACTIONS (1)
  - HEAD AND NECK CANCER [None]
